FAERS Safety Report 9721817 (Version 2)
Quarter: 2014Q1

REPORT INFORMATION
  Report Type: Spontaneous
  Country: US (occurrence: US)
  Receive Date: 20131201
  Receipt Date: 20140225
  Transmission Date: 20141002
  Serious: No
  Sender: FDA-Public Use
  Company Number: US-ABBVIE-13P-163-1156971-00

PATIENT
  Age: 54 Year
  Sex: Male
  Weight: 74 kg

DRUGS (7)
  1. ANDROGEL [Suspect]
     Indication: BLOOD TESTOSTERONE DECREASED
     Route: 061
     Dates: start: 201308
  2. IBRUTINIB [Concomitant]
     Indication: LEUKAEMIA
  3. BACTRIM [Concomitant]
     Indication: PROPHYLAXIS
  4. VALTREX [Concomitant]
     Indication: PROPHYLAXIS
  5. MONOPRIL [Concomitant]
     Indication: HYPERTENSION
  6. KLONOPIN [Concomitant]
     Indication: FIBROMYALGIA
  7. GUAIFENESIN [Concomitant]
     Indication: FIBROMYALGIA

REACTIONS (1)
  - Blood testosterone decreased [Not Recovered/Not Resolved]
